FAERS Safety Report 9423258 (Version 1)
Quarter: 2013Q3

REPORT INFORMATION
  Report Type: Spontaneous
  Country: US (occurrence: US)
  Receive Date: 20130726
  Receipt Date: 20130726
  Transmission Date: 20140515
  Serious: No
  Sender: FDA-Public Use
  Company Number: US-PFIZER INC-2013218401

PATIENT
  Sex: Male

DRUGS (1)
  1. GABAPENTIN [Suspect]
     Indication: NERVE INJURY
     Dosage: UNK
     Dates: start: 20130723

REACTIONS (3)
  - Visual impairment [Unknown]
  - Feeling abnormal [Unknown]
  - Gait disturbance [Unknown]
